FAERS Safety Report 4646356-6 (Version None)
Quarter: 2005Q2

REPORT INFORMATION
  Report Type: 
  Country: None (occurrence: None)
  Receive Date: 20050427
  Receipt Date: 20050316
  Transmission Date: 20051028
  Serious: Yes (Hospitalization)
  Sender: FDA-Public Use
  Company Number: GB-BRISTOL-MYERS SQUIBB COMPANY-12902615

PATIENT
  Age: 39 Year
  Sex: Female

DRUGS (5)
  1. TAXOL [Suspect]
  2. CYCLIZINE [Concomitant]
  3. HALOPERIDOL [Concomitant]
  4. OMEPRAZOLE [Concomitant]
  5. MORPHINE SULFATE [Concomitant]

REACTIONS (1)
  - SPINAL CORD OEDEMA [None]
